FAERS Safety Report 6766117-1 (Version None)
Quarter: 2010Q2

REPORT INFORMATION
  Report Type: 
  Country: None (occurrence: None)
  Receive Date: 20100611
  Receipt Date: 20100608
  Transmission Date: 20101027
  Serious: Yes (Death)
  Sender: FDA-Public Use
  Company Number: JP-SANOFI-AVENTIS-2010SA031911

PATIENT
  Age: 73 Year
  Sex: Male

DRUGS (1)
  1. TAXOTERE [Suspect]
     Indication: LUNG SQUAMOUS CELL CARCINOMA RECURRENT
     Route: 041
     Dates: start: 20100405, end: 20100405

REACTIONS (1)
  - NON-SMALL CELL LUNG CANCER RECURRENT [None]
